FAERS Safety Report 6434390-5 (Version None)
Quarter: 2009Q4

REPORT INFORMATION
  Report Type: 
  Country: None (occurrence: None)
  Receive Date: 20091110
  Receipt Date: 20090919
  Transmission Date: 20100525
  Serious: No
  Sender: FDA-Public Use
  Company Number: US-ASTRAZENECA-2009SE14022

PATIENT
  Age: 79 Year
  Sex: Female
  Weight: 56.7 kg

DRUGS (12)
  1. PRILOSEC OTC [Suspect]
     Indication: GASTROOESOPHAGEAL REFLUX DISEASE
     Dosage: 1 TABLET, 1 /DAY FOR 5 DAYS
     Route: 048
     Dates: start: 20070526, end: 20070531
  2. PRILOSEC OTC [Suspect]
     Indication: DYSPEPSIA
     Dosage: 1 TABLET, 1 /DAY FOR 5 DAYS
     Route: 048
     Dates: start: 20070526, end: 20070531
  3. PRILOSEC OTC [Suspect]
     Indication: HYPERCHLORHYDRIA
     Dosage: 1 TABLET, 1 /DAY FOR 5 DAYS
     Route: 048
     Dates: start: 20070526, end: 20070531
  4. PRILOSEC OTC [Suspect]
     Dosage: .5 TABLET, CYCLIC 1/D
     Route: 048
  5. PRILOSEC OTC [Suspect]
     Dosage: .5 TABLET, CYCLIC 1/D
     Route: 048
  6. PRILOSEC OTC [Suspect]
     Dosage: .5 TABLET, CYCLIC 1/D
     Route: 048
  7. PRILOSEC OTC [Suspect]
     Route: 048
  8. PRILOSEC OTC [Suspect]
     Route: 048
  9. PRILOSEC OTC [Suspect]
     Route: 048
  10. FASAX [Concomitant]
     Dosage: UNKNOWN
  11. ATIVAN [Concomitant]
     Dosage: UNKNOWN
  12. ESTRADIOL [Concomitant]
     Dosage: UNKNOWN

REACTIONS (6)
  - ABDOMINAL DISCOMFORT [None]
  - DIARRHOEA [None]
  - DRUG INEFFECTIVE [None]
  - INAPPROPRIATE SCHEDULE OF DRUG ADMINISTRATION [None]
  - INCORRECT DOSE ADMINISTERED [None]
  - WRONG TECHNIQUE IN DRUG USAGE PROCESS [None]
